FAERS Safety Report 23626503 (Version 1)
Quarter: 2024Q1

REPORT INFORMATION
  Report Type: Spontaneous
  Country: US (occurrence: US)
  Receive Date: 20240313
  Receipt Date: 20240313
  Transmission Date: 20240409
  Serious: No
  Sender: FDA-Public Use
  Company Number: US-MYLANLABS-2024M1022509

PATIENT
  Age: 35 Year
  Sex: Female
  Weight: 77.11 kg

DRUGS (8)
  1. LYRICA [Suspect]
     Active Substance: PREGABALIN
     Indication: Occipital neuralgia
     Dosage: 75 MILLIGRAM, TID
     Route: 065
     Dates: start: 202312
  2. LYRICA [Suspect]
     Active Substance: PREGABALIN
     Indication: Fibromyalgia
  3. LYRICA [Suspect]
     Active Substance: PREGABALIN
     Indication: Neck pain
  4. GABAPENTIN [Suspect]
     Active Substance: GABAPENTIN
     Indication: Product used for unknown indication
     Dosage: UNK
     Route: 065
     Dates: start: 202312
  5. LEXAPRO [Concomitant]
     Active Substance: ESCITALOPRAM OXALATE
     Dosage: UNK
     Route: 065
  6. VITAMIN D [Concomitant]
     Active Substance: VITAMIN D NOS
     Dosage: UNK
     Route: 065
  7. VITAMIN B2 [Concomitant]
     Active Substance: RIBOFLAVIN
     Dosage: UNK
     Route: 065
  8. IRON [Concomitant]
     Active Substance: IRON
     Dosage: UNK
     Route: 065

REACTIONS (7)
  - Facial discomfort [Unknown]
  - Hypoaesthesia [Unknown]
  - Flushing [Unknown]
  - Paraesthesia [Unknown]
  - Swelling face [Unknown]
  - Dry mouth [Unknown]
  - Drug ineffective [Unknown]
